FAERS Safety Report 16468329 (Version 2)
Quarter: 2020Q3

REPORT INFORMATION
  Report Type: Report from Study
  Country: US (occurrence: US)
  Receive Date: 20190624
  Receipt Date: 20200710
  Transmission Date: 20201102
  Serious: Yes (Other)
  Sender: FDA-Public Use
  Company Number: PHHY2018US139182

PATIENT
  Age: 29 Year
  Sex: Female

DRUGS (1)
  1. GILENYA [Suspect]
     Active Substance: FINGOLIMOD HYDROCHLORIDE
     Indication: MULTIPLE SCLEROSIS
     Dosage: UNK, QD
     Route: 048

REACTIONS (12)
  - Blindness unilateral [Unknown]
  - Lymphocyte count decreased [Unknown]
  - Dry skin [Not Recovered/Not Resolved]
  - Anxiety [Not Recovered/Not Resolved]
  - Arthralgia [Not Recovered/Not Resolved]
  - Neck pain [Unknown]
  - Abdominal pain lower [Recovered/Resolved]
  - Vaginal haemorrhage [Recovered/Resolved]
  - Alanine aminotransferase increased [Unknown]
  - Depression [Unknown]
  - Lymphopenia [Not Recovered/Not Resolved]
  - Fall [Unknown]

NARRATIVE: CASE EVENT DATE: 20180705
